FAERS Safety Report 9369875 (Version 1)
Quarter: 2013Q2

REPORT INFORMATION
  Report Type: Spontaneous
  Country: KR (occurrence: KR)
  Receive Date: 20130626
  Receipt Date: 20130626
  Transmission Date: 20140414
  Serious: Yes (Other)
  Sender: FDA-Public Use
  Company Number: KR-JNJFOC-20130608810

PATIENT
  Age: 17 Month
  Sex: Female

DRUGS (2)
  1. CLADRIBINE [Suspect]
     Indication: MALIGNANT HISTIOCYTOSIS
     Route: 065
  2. ARA-C [Suspect]
     Indication: MALIGNANT HISTIOCYTOSIS
     Route: 065

REACTIONS (3)
  - Hepatic cirrhosis [Unknown]
  - Cholelithiasis [Unknown]
  - Off label use [Unknown]
